FAERS Safety Report 22324534 (Version 2)
Quarter: 2023Q2

REPORT INFORMATION
  Report Type: Spontaneous
  Country: CN (occurrence: None)
  Receive Date: 20230516
  Receipt Date: 20230524
  Transmission Date: 20230722
  Serious: Yes (Death)
  Sender: FDA-Public Use
  Company Number: CN-ROCHE-3338292

PATIENT
  Age: 59 Year
  Sex: Female
  Weight: 53 kg

DRUGS (31)
  1. ACTEMRA [Suspect]
     Active Substance: TOCILIZUMAB
     Indication: Haemophagocytic lymphohistiocytosis
     Route: 042
  2. CYCLOPHOSPHAMIDE [Concomitant]
     Active Substance: CYCLOPHOSPHAMIDE
     Indication: Lymphocyte count abnormal
     Route: 041
     Dates: start: 20230222, end: 20230224
  3. FLUDARABINE [Concomitant]
     Active Substance: FLUDARABINE PHOSPHATE
     Indication: Lymphocyte count abnormal
     Dosage: D1-D2
     Route: 041
     Dates: start: 20230222, end: 20230223
  4. IRINOTECAN [Concomitant]
     Active Substance: IRINOTECAN
     Indication: Oesophageal adenocarcinoma
     Route: 041
     Dates: start: 20230129, end: 20230129
  5. PACLITAXEL [Concomitant]
     Active Substance: PACLITAXEL
     Indication: Lymphocyte count abnormal
     Route: 041
     Dates: start: 20230223, end: 20230223
  6. IBUPROFEN [Concomitant]
     Active Substance: IBUPROFEN
     Route: 048
     Dates: start: 20230227, end: 20230227
  7. IBUPROFEN [Concomitant]
     Active Substance: IBUPROFEN
     Route: 048
     Dates: start: 20230228
  8. ESOMEPRAZOLE [Concomitant]
     Active Substance: ESOMEPRAZOLE
     Route: 048
     Dates: start: 20230226
  9. METHYLPREDNISOLONE SODIUM SUCCINATE [Concomitant]
     Active Substance: METHYLPREDNISOLONE SODIUM SUCCINATE
     Indication: Haemophagocytic lymphohistiocytosis
     Route: 041
  10. METHYLPREDNISOLONE SODIUM SUCCINATE [Concomitant]
     Active Substance: METHYLPREDNISOLONE SODIUM SUCCINATE
  11. DEXAMETHASONE SODIUM PHOSPHATE [Concomitant]
     Active Substance: DEXAMETHASONE SODIUM PHOSPHATE
     Route: 042
  12. SOMATOSTATIN [Concomitant]
     Active Substance: SOMATOSTATIN
     Route: 041
  13. BUDESONIDE [Concomitant]
     Active Substance: BUDESONIDE
  14. IPRATROPIUM BROMIDE [Concomitant]
     Active Substance: IPRATROPIUM BROMIDE\IPRATROPIUM BROMIDE ANHYDROUS
  15. EPINEPHRINE HYDROCHLORIDE [Concomitant]
     Active Substance: EPINEPHRINE HYDROCHLORIDE
  16. NOREPINEPHRINE BITARTRATE [Concomitant]
     Active Substance: NOREPINEPHRINE BITARTRATE
     Indication: Hypotension
     Route: 041
  17. CALCIUM GLUCONATE [Concomitant]
     Active Substance: CALCIUM GLUCONATE
     Indication: Hypocalcaemia
  18. CALCIUM GLUCONATE [Concomitant]
     Active Substance: CALCIUM GLUCONATE
     Route: 041
  19. INSULIN NOS [Concomitant]
     Active Substance: INSULIN NOS
     Dosage: 50 U
  20. MAGNESIUM ISOGLYCYRRHIZINATE [Concomitant]
     Active Substance: MAGNESIUM ISOGLYCYRRHIZINATE
     Route: 041
  21. CIMETIDINE [Concomitant]
     Active Substance: CIMETIDINE
     Dates: start: 20230227, end: 20230227
  22. ROXATIDINE ACETATE HYDROCHLORIDE [Concomitant]
     Active Substance: ROXATIDINE ACETATE HYDROCHLORIDE
     Route: 042
  23. ALBUMIN HUMAN [Concomitant]
     Active Substance: ALBUMIN HUMAN
  24. COMPOUND GLUTAMINE GRANULES [Concomitant]
  25. IRON SUCROSE [Concomitant]
     Active Substance: IRON SUCROSE
  26. ADEMETIONINE BUTANEDISULFONATE [Concomitant]
     Active Substance: ADEMETIONINE BUTANEDISULFONATE
  27. GRANULOCYTE COLONY-STIMULATING FACTOR NOS [Concomitant]
     Active Substance: GRANULOCYTE COLONY-STIMULATING FACTOR NOS
  28. THROMBOPOIETIN [Concomitant]
     Active Substance: THROMBOPOIETIN
  29. PROMETHAZINE HYDROCHLORIDE [Concomitant]
     Active Substance: PROMETHAZINE HYDROCHLORIDE
     Indication: Hypersensitivity
     Route: 030
  30. PROMETHAZINE HYDROCHLORIDE [Concomitant]
     Active Substance: PROMETHAZINE HYDROCHLORIDE
     Route: 042
  31. IMIPENEM AND CILASTATIN SODIUM [Concomitant]
     Active Substance: CILASTATIN SODIUM\IMIPENEM
     Route: 041

REACTIONS (2)
  - Anaphylactic shock [Fatal]
  - Off label use [Unknown]

NARRATIVE: CASE EVENT DATE: 20230323
